FAERS Safety Report 23807750 (Version 1)
Quarter: 2024Q2

REPORT INFORMATION
  Report Type: Report from Study
  Country: US (occurrence: GT)
  Receive Date: 20240502
  Receipt Date: 20240502
  Transmission Date: 20240716
  Serious: Yes (Death)
  Sender: FDA-Public Use
  Company Number: US-TEVA-VS-3191484

PATIENT
  Age: 3 Year
  Sex: Male

DRUGS (3)
  1. ETOPOSIDE [Suspect]
     Active Substance: ETOPOSIDE
     Indication: Retinoblastoma
     Route: 065
  2. CARBOPLATIN [Suspect]
     Active Substance: CARBOPLATIN
     Indication: Retinoblastoma
     Route: 065
  3. VINCRISTINE [Suspect]
     Active Substance: VINCRISTINE
     Indication: Retinoblastoma
     Route: 065

REACTIONS (1)
  - Drug ineffective [Fatal]
